FAERS Safety Report 5664903-2 (Version None)
Quarter: 2008Q1

REPORT INFORMATION
  Report Type: 
  Country: None (occurrence: None)
  Receive Date: 20080314
  Receipt Date: 20080307
  Transmission Date: 20080703
  Serious: Yes (Death, Hospitalization)
  Sender: FDA-Public Use
  Company Number: US-GILEAD-2008-0015569

PATIENT
  Sex: Female

DRUGS (9)
  1. LETAIRIS [Suspect]
     Indication: PULMONARY HYPERTENSION
     Route: 048
     Dates: start: 20071101
  2. VIAGRA [Concomitant]
  3. FUROSEMIDE [Concomitant]
  4. LOVENOX [Concomitant]
  5. DIGOXIN [Concomitant]
  6. CARDIZEM [Concomitant]
  7. ARIMIDEX [Concomitant]
  8. XOPENEX [Concomitant]
  9. MYLANTA [Concomitant]

REACTIONS (6)
  - ACUTE LEUKAEMIA [None]
  - ATRIAL FIBRILLATION [None]
  - BREAST CANCER [None]
  - CARDIAC FAILURE CONGESTIVE [None]
  - PERICARDIAL EFFUSION [None]
  - PLEURAL EFFUSION [None]
